FAERS Safety Report 12527267 (Version 9)
Quarter: 2020Q3

REPORT INFORMATION
  Report Type: Report from Study
  Country: JP (occurrence: JP)
  Receive Date: 20160705
  Receipt Date: 20200916
  Transmission Date: 20201102
  Serious: Yes (Hospitalization, Disabling, Other)
  Sender: FDA-Public Use
  Company Number: JP-VIIV HEALTHCARE LIMITED-JP2016JPN092059

PATIENT
  Age: 5 Decade
  Sex: Male

DRUGS (17)
  1. SILECE [Concomitant]
     Active Substance: FLUNITRAZEPAM
     Indication: INSOMNIA
     Dosage: 1 MG, QD
     Dates: start: 20150420, end: 20160628
  2. DOLUTEGRAVIR [Suspect]
     Active Substance: DOLUTEGRAVIR
     Dosage: 50 MG, 1D
     Route: 048
     Dates: start: 20151202
  3. TRUVADA [Suspect]
     Active Substance: EMTRICITABINE\TENOFOVIR DISOPROXIL FUMARATE
     Indication: HIV INFECTION
     Dosage: 1 DF, 1D
     Route: 048
     Dates: start: 20150428, end: 20170910
  4. EBUTOL (JAPAN) [Concomitant]
     Indication: TUBERCULOMA OF CENTRAL NERVOUS SYSTEM
  5. RIFAMPICIN [Concomitant]
     Active Substance: RIFAMPIN
     Indication: TUBERCULOMA OF CENTRAL NERVOUS SYSTEM
  6. DOLUTEGRAVIR [Suspect]
     Active Substance: DOLUTEGRAVIR
     Indication: HIV INFECTION
     Dosage: 100 MG, 1D
     Route: 048
     Dates: start: 20150428, end: 20151201
  7. DESCOVY [Suspect]
     Active Substance: EMTRICITABINE\TENOFOVIR ALAFENAMIDE FUMARATE
     Indication: HIV INFECTION
     Dosage: 1 DF, 1D
     Route: 048
     Dates: start: 20170911
  8. PYDOXAL [Concomitant]
     Active Substance: PYRIDOXAL
     Indication: VITAMIN SUPPLEMENTATION
     Dosage: 30 MG, QD
     Dates: start: 20150302, end: 20151201
  9. PYRAMIDE [Concomitant]
     Active Substance: PYRAZINAMIDE
     Indication: TUBERCULOMA OF CENTRAL NERVOUS SYSTEM
  10. RIFAMPICIN [Concomitant]
     Active Substance: RIFAMPIN
     Indication: DISSEMINATED TUBERCULOSIS
     Dosage: 600 MG, QD
     Dates: start: 20150302
  11. ISCOTIN (JAPAN) [Concomitant]
     Indication: DISSEMINATED TUBERCULOSIS
     Dosage: 300 MG, QD
     Dates: start: 20150302, end: 20151201
  12. PYRAMIDE [Concomitant]
     Active Substance: PYRAZINAMIDE
     Indication: DISSEMINATED TUBERCULOSIS
     Dosage: 1.5 G, QD
     Dates: start: 20150302, end: 20150428
  13. BAKTAR [Concomitant]
     Active Substance: SULFAMETHOXAZOLE\TRIMETHOPRIM
     Indication: ANTIFUNGAL PROPHYLAXIS
     Dosage: 1 DF, QD
     Dates: start: 20150420, end: 20161013
  14. FEXOFENADINE HYDROCHLORIDE OD TABLET [Concomitant]
     Indication: RASH
     Dosage: 60 MG, BID
     Dates: start: 20150420
  15. FLUNITRAZEPAM [Concomitant]
     Active Substance: FLUNITRAZEPAM
     Dosage: UNK
     Dates: start: 20180222
  16. ISCOTIN (JAPAN) [Concomitant]
     Indication: TUBERCULOMA OF CENTRAL NERVOUS SYSTEM
  17. EBUTOL (JAPAN) [Concomitant]
     Indication: DISSEMINATED TUBERCULOSIS
     Dosage: 1000 MG, QD
     Dates: start: 20150302, end: 20151201

REACTIONS (8)
  - Immune reconstitution inflammatory syndrome associated tuberculosis [Recovering/Resolving]
  - Tuberculoma of central nervous system [Recovering/Resolving]
  - Liver function test increased [Not Recovered/Not Resolved]
  - Type 2 diabetes mellitus [Not Recovered/Not Resolved]
  - Blood cholesterol increased [Not Recovered/Not Resolved]
  - Syphilis [Not Recovered/Not Resolved]
  - Blood triglycerides increased [Not Recovered/Not Resolved]
  - Gamma-glutamyltransferase increased [Recovering/Resolving]

NARRATIVE: CASE EVENT DATE: 20150511
